FAERS Safety Report 20077579 (Version 4)
Quarter: 2022Q1

REPORT INFORMATION
  Report Type: Spontaneous
  Country: JP (occurrence: JP)
  Receive Date: 20211116
  Receipt Date: 20220116
  Transmission Date: 20220423
  Serious: Yes (Life-Threatening, Hospitalization, Congenital Anomaly, Other)
  Sender: FDA-Public Use
  Company Number: JP-TAKEDA-2021TJP117504

PATIENT
  Age: 0 Year
  Sex: Male
  Weight: 4.1 kg

DRUGS (7)
  1. TRINTELLIX [Suspect]
     Active Substance: VORTIOXETINE HYDROBROMIDE
     Indication: Depression
     Dosage: 10 MILLIGRAM, QD
     Route: 064
     Dates: start: 20210813, end: 202111
  2. TRINTELLIX [Suspect]
     Active Substance: VORTIOXETINE HYDROBROMIDE
     Dosage: 10 MILLIGRAM, QD
     Route: 063
     Dates: start: 202111, end: 202111
  3. LEXAPRO [Suspect]
     Active Substance: ESCITALOPRAM OXALATE
     Indication: Depression
     Dosage: 20 MILLIGRAM, QD
     Route: 064
     Dates: start: 20210922, end: 202111
  4. LEXAPRO [Suspect]
     Active Substance: ESCITALOPRAM OXALATE
     Dosage: 20 MILLIGRAM, QD
     Route: 063
     Dates: start: 202111, end: 202111
  5. QUETIAPINE [Suspect]
     Active Substance: QUETIAPINE
     Indication: Depression
     Dosage: 12.5 MILLIGRAM, QD
     Route: 064
     Dates: start: 20210520, end: 202111
  6. QUETIAPINE [Suspect]
     Active Substance: QUETIAPINE
     Dosage: 12.5 MILLIGRAM
     Route: 064
     Dates: start: 202109, end: 202111
  7. QUETIAPINE [Suspect]
     Active Substance: QUETIAPINE
     Dosage: 12.5 MILLIGRAM, QD
     Route: 063
     Dates: start: 202111, end: 202111

REACTIONS (4)
  - Infantile apnoea [Recovering/Resolving]
  - Neonatal asphyxia [Unknown]
  - Foetal exposure during pregnancy [Unknown]
  - Exposure via breast milk [Unknown]

NARRATIVE: CASE EVENT DATE: 20211106
